FAERS Safety Report 9825204 (Version 2)
Quarter: 2014Q1

REPORT INFORMATION
  Report Type: Report from Study
  Country: CA (occurrence: CA)
  Receive Date: 20140117
  Receipt Date: 20140131
  Transmission Date: 20141002
  Serious: Yes (Other)
  Sender: FDA-Public Use
  Company Number: CA-ROCHE-1332118

PATIENT
  Sex: Male

DRUGS (16)
  1. ACTEMRA [Suspect]
     Indication: RHEUMATOID ARTHRITIS
     Route: 042
     Dates: start: 20130919, end: 20140114
  2. SULFASALAZINE [Concomitant]
  3. LYRICA [Concomitant]
  4. VALACYCLOVIR [Concomitant]
  5. TRUVADA [Concomitant]
  6. DILAUDID [Concomitant]
  7. KALETRA [Concomitant]
  8. NASONEX [Concomitant]
  9. QUETIAPINE [Concomitant]
  10. DOCUSATE [Concomitant]
  11. FERROUS SULFATE [Concomitant]
  12. VALSARTAN HCT [Concomitant]
  13. OMEPRAZOLE [Concomitant]
  14. SENNA [Concomitant]
  15. HYDROMORPH CONTIN [Concomitant]
  16. VENTOLIN [Concomitant]

REACTIONS (4)
  - Arthralgia [Not Recovered/Not Resolved]
  - Ill-defined disorder [Not Recovered/Not Resolved]
  - Arthritis [Not Recovered/Not Resolved]
  - Drug ineffective [Unknown]
